APPROVED DRUG PRODUCT: FOLEX
Active Ingredient: METHOTREXATE SODIUM
Strength: EQ 100MG BASE/VIAL
Dosage Form/Route: INJECTABLE;INJECTION
Application: A087695 | Product #003
Applicant: PHARMACIA AND UPJOHN CO
Approved: Apr 8, 1983 | RLD: Yes | RS: No | Type: DISCN